FAERS Safety Report 5892704-9 (Version None)
Quarter: 2008Q3

REPORT INFORMATION
  Report Type: 
  Country: None (occurrence: None)
  Receive Date: 20080923
  Receipt Date: 20080917
  Transmission Date: 20090109
  Serious: Yes (Hospitalization, Other)
  Sender: FDA-Public Use
  Company Number: PHHY2008JP21839

PATIENT
  Age: 70 Year
  Sex: Male

DRUGS (1)
  1. CYCLOSPORINE [Suspect]
     Indication: PSORIASIS
     Route: 048

REACTIONS (5)
  - ACTINIC KERATOSIS [None]
  - BASAL CELL CARCINOMA [None]
  - BOWEN'S DISEASE [None]
  - NODULE ON EXTREMITY [None]
  - SQUAMOUS CELL CARCINOMA [None]
